FAERS Safety Report 4773075-8 (Version None)
Quarter: 2005Q3

REPORT INFORMATION
  Report Type: 
  Country: None (occurrence: None)
  Receive Date: 20050919
  Receipt Date: 20050721
  Transmission Date: 20060218
  Serious: Yes (Other)
  Sender: FDA-Public Use
  Company Number: JP-BRISTOL-MYERS SQUIBB COMPANY-13052246

PATIENT
  Age: 77 Year
  Sex: Female

DRUGS (13)
  1. GATIFLOXACIN [Suspect]
     Indication: UPPER RESPIRATORY TRACT INFLAMMATION
     Route: 048
     Dates: start: 20050714, end: 20050718
  2. NEUQUINON [Concomitant]
     Route: 048
     Dates: start: 20040227
  3. ASPIRIN [Concomitant]
     Route: 048
     Dates: start: 20050419
  4. MICARDIS [Concomitant]
     Route: 048
     Dates: start: 20040227
  5. NORVASC [Concomitant]
     Route: 048
     Dates: start: 20040227
  6. KETOPROFEN [Concomitant]
     Route: 062
     Dates: start: 20040227
  7. LIPITOR [Concomitant]
     Route: 048
     Dates: start: 20040227
  8. CYANOCOBALAMIN [Concomitant]
     Route: 048
     Dates: start: 20040227
  9. TENORMIN [Concomitant]
     Route: 048
     Dates: start: 20050127
  10. LORCAM [Concomitant]
     Route: 048
     Dates: start: 20040227
  11. LASIX [Concomitant]
     Route: 048
     Dates: start: 20040227
  12. SLOW-K [Concomitant]
     Route: 048
     Dates: start: 20040227
  13. MUCOSTA [Concomitant]
     Route: 048
     Dates: start: 20040227

REACTIONS (3)
  - DYSGEUSIA [None]
  - HYPERGLYCAEMIA [None]
  - THIRST [None]
